FAERS Safety Report 17970623 (Version 1)
Quarter: 2020Q3

REPORT INFORMATION
  Report Type: Spontaneous
  Country: US (occurrence: US)
  Receive Date: 20200702
  Receipt Date: 20200702
  Transmission Date: 20201103
  Serious: No
  Sender: FDA-Public Use
  Company Number: US-TEVA-2020-US-1793280

PATIENT

DRUGS (1)
  1. AUSTEDO [Suspect]
     Active Substance: DEUTETRABENAZINE
     Indication: TARDIVE DYSKINESIA
     Dosage: TITRATED TO 6MG, 9MG, 12MG, 18 MG, 48 MG
     Route: 065
     Dates: start: 202001

REACTIONS (3)
  - Eyelid function disorder [Unknown]
  - Drug ineffective [Unknown]
  - Dyskinesia [Unknown]
